FAERS Safety Report 17209059 (Version 6)
Quarter: 2020Q1

REPORT INFORMATION
  Report Type: Spontaneous
  Country: NL (occurrence: NL)
  Receive Date: 20191227
  Receipt Date: 20200310
  Transmission Date: 20200409
  Serious: Yes (Hospitalization)
  Sender: FDA-Public Use
  Company Number: NL-MYLANLABS-2019M1128221

PATIENT
  Age: 54 Year
  Sex: Female
  Weight: 84.5 kg

DRUGS (19)
  1. DAPAGLIFLOZINE [Suspect]
     Active Substance: DAPAGLIFLOZIN
     Dosage: 10 MILLIGRAM, QD
     Route: 048
     Dates: start: 20190820, end: 20190824
  2. EPANOVA [Concomitant]
     Active Substance: OMEGA-3-CARBOXYLIC ACIDS
     Dosage: 4 GRAM, QD
     Route: 048
     Dates: start: 20170803, end: 20190824
  3. EPANOVA [Concomitant]
     Active Substance: OMEGA-3-CARBOXYLIC ACIDS
     Dosage: 4 GRAM, QD
     Route: 048
     Dates: start: 20170803, end: 20190823
  4. HYDROCHLOORTHIAZIDE [Concomitant]
     Active Substance: HYDROCHLOROTHIAZIDE
     Dosage: 13 MILLIGRAM, QD
     Route: 048
     Dates: start: 20160427, end: 20190901
  5. DAPAGLIFLOZINE [Suspect]
     Active Substance: DAPAGLIFLOZIN
     Dosage: 10 MILLIGRAM, QD
     Route: 048
     Dates: start: 20170510, end: 20190701
  6. METFORMIN [Suspect]
     Active Substance: METFORMIN HYDROCHLORIDE
     Dosage: 1000 MILLIGRAM, Q8H
     Route: 048
     Dates: start: 20190819, end: 20190824
  7. EPANOVA [Concomitant]
     Active Substance: OMEGA-3-CARBOXYLIC ACIDS
     Dosage: 4 GRAM, QD
     Route: 048
     Dates: start: 20150827, end: 20160630
  8. METFORMIN [Suspect]
     Active Substance: METFORMIN HYDROCHLORIDE
     Dosage: 500 MILLIGRAM, Q8H
     Route: 048
     Dates: start: 20170407, end: 20180121
  9. EPANOVA [Concomitant]
     Active Substance: OMEGA-3-CARBOXYLIC ACIDS
     Dosage: UNK
     Route: 048
     Dates: start: 20190920
  10. METFORMIN [Suspect]
     Active Substance: METFORMIN HYDROCHLORIDE
     Dosage: 500 MILLIGRAM, BID, 12 HRS
     Route: 048
     Dates: start: 20160804, end: 20170406
  11. METFORMIN [Suspect]
     Active Substance: METFORMIN HYDROCHLORIDE
     Dosage: 1000 MILLIGRAM, Q8H
     Route: 048
     Dates: start: 20181206, end: 20190701
  12. EPANOVA [Concomitant]
     Active Substance: OMEGA-3-CARBOXYLIC ACIDS
     Indication: HYPERTRIGLYCERIDAEMIA
     Dosage: 4 GRAM, QD
     Route: 048
     Dates: start: 20160708, end: 20161005
  13. EPANOVA [Concomitant]
     Active Substance: OMEGA-3-CARBOXYLIC ACIDS
     Dosage: 4 GRAM, QD
     Route: 048
     Dates: start: 20161026, end: 20170216
  14. HYDROCHLOORTHIAZIDE [Concomitant]
     Active Substance: HYDROCHLOROTHIAZIDE
     Indication: HYPERTENSION
     Dosage: 13 MILLIGRAM, BID, 12 HRS
     Route: 048
     Dates: start: 20150715, end: 20160426
  15. METFORMIN [Suspect]
     Active Substance: METFORMIN HYDROCHLORIDE
     Indication: DIABETES MELLITUS
     Dosage: 1000 MILLIGRAM, BID
     Route: 048
     Dates: start: 2001, end: 20160803
  16. METFORMIN [Suspect]
     Active Substance: METFORMIN HYDROCHLORIDE
     Dosage: 1000 MILLIGRAM, BID
     Route: 048
     Dates: start: 20180122, end: 20181205
  17. DAPAGLIFLOZINE [Suspect]
     Active Substance: DAPAGLIFLOZIN
     Indication: DIABETES MELLITUS
     Dosage: 10 MILLIGRAM, QD
     Route: 048
     Dates: start: 20170710, end: 20190701
  18. EPANOVA [Concomitant]
     Active Substance: OMEGA-3-CARBOXYLIC ACIDS
     Dosage: 4 GRAM, QD
     Route: 048
     Dates: start: 20190827, end: 20190830
  19. ATORVASTATIN [Concomitant]
     Active Substance: ATORVASTATIN
     Indication: HYPERCHOLESTEROLAEMIA
     Dosage: 40 MILLIGRAM, QD
     Route: 048
     Dates: start: 201312

REACTIONS (2)
  - Diabetic ketoacidosis [Recovered/Resolved]
  - Ketoacidosis [Not Recovered/Not Resolved]

NARRATIVE: CASE EVENT DATE: 20190824
